FAERS Safety Report 13241579 (Version 6)
Quarter: 2018Q2

REPORT INFORMATION
  Report Type: Report from Study
  Country: DE (occurrence: DE)
  Receive Date: 20170217
  Receipt Date: 20180615
  Transmission Date: 20180711
  Serious: Yes (Hospitalization)
  Sender: FDA-Public Use
  Company Number: DE-BEH-2017078221

PATIENT
  Age: 68 Year
  Sex: Female
  Weight: 60 kg

DRUGS (27)
  1. ANTIEMETICS AND ANTINAUSEANTS [Concomitant]
     Active Substance: UNSPECIFIED INGREDIENT
     Route: 065
  2. ANTI-LIPIDE [Concomitant]
     Active Substance: CLOFIBRATE\INOSITOL NIACINATE
     Route: 065
  3. ZOFRAN [Concomitant]
     Active Substance: ONDANSETRON HYDROCHLORIDE
     Indication: NAUSEA
     Dosage: 4 MG, PRN
     Route: 065
  4. PRIVIGEN [Suspect]
     Active Substance: HUMAN IMMUNOGLOBULIN G
     Dosage: 15 G TOTAL; INFUSION RATE: 36-288 ML/H
     Route: 042
     Dates: start: 20160830, end: 20160830
  5. ENALAPRIL [Concomitant]
     Active Substance: ENALAPRIL
     Dosage: 10 MG, BID (1-0-1-0)
     Route: 065
  6. PRIVIGEN [Suspect]
     Active Substance: HUMAN IMMUNOGLOBULIN G
     Indication: CHRONIC LYMPHOCYTIC LEUKAEMIA
     Dosage: 20 G, TOT
     Route: 042
     Dates: start: 20160802, end: 20160802
  7. PRIVIGEN [Suspect]
     Active Substance: HUMAN IMMUNOGLOBULIN G
     Dosage: 5 G, TOT; INFUSION RATE: 18-288 ML/H
     Route: 042
  8. SIMVASTATIN. [Concomitant]
     Active Substance: SIMVASTATIN
     Dosage: 20 MG, OD (0-0-1-0)
     Route: 065
  9. ASA [Concomitant]
     Active Substance: ASPIRIN
     Dosage: 100 MG, OD (0-1-0-0)
     Route: 065
  10. MITOMYCIN. [Concomitant]
     Active Substance: MITOMYCIN
     Indication: ANAL CANCER STAGE II
     Dosage: UNK
     Route: 065
  11. METOBETA COMP [Concomitant]
     Dosage: 1 DF, BID (1-0-1-0)
     Route: 065
  12. PRIVIGEN [Suspect]
     Active Substance: HUMAN IMMUNOGLOBULIN G
     Indication: CHRONIC LYMPHOCYTIC LEUKAEMIA
     Dosage: 5 G, TOT; INFUSION RATE: 18-288 ML/H
     Route: 042
     Dates: start: 20160705, end: 20160705
  13. PROTON PUMP INHIBITORS [Concomitant]
     Active Substance: UNSPECIFIED INGREDIENT
     Dosage: UNK
     Route: 065
  14. 5-FU                               /00098801/ [Concomitant]
     Active Substance: FLUOROURACIL
     Indication: ANAL CANCER STAGE II
     Dosage: UNK
     Route: 065
     Dates: start: 20160711
  15. OMEPRAZOLE. [Concomitant]
     Active Substance: OMEPRAZOLE
     Dosage: 40 MG, OD (0-0-1-0)
     Route: 065
  16. PRIVIGEN [Suspect]
     Active Substance: HUMAN IMMUNOGLOBULIN G
     Dosage: UNK
     Route: 042
     Dates: start: 20160830, end: 20160830
  17. PRIVIGEN [Suspect]
     Active Substance: HUMAN IMMUNOGLOBULIN G
     Dosage: 20 G, TOT; INFUSION RATE: 18-288 ML/H
     Route: 042
  18. REMIFEMIN [Concomitant]
     Active Substance: BLACK COHOSH
     Dosage: 1 DF, TID
     Route: 065
     Dates: start: 1995
  19. AMLODIPIN                          /00972401/ [Concomitant]
     Active Substance: AMLODIPINE BESYLATE
     Dosage: 5 MG, OD (1-0-0-0)
     Route: 065
  20. PRIVIGEN [Suspect]
     Active Substance: HUMAN IMMUNOGLOBULIN G
     Dosage: 15 G TOTAL; INFUSION RATE: 36-288 ML/H
     Route: 042
  21. OCTENISEPT                         /00972101/ [Concomitant]
     Dosage: 1 DF, QID (1-1-1-1)
     Route: 065
  22. PRIVIGEN [Suspect]
     Active Substance: HUMAN IMMUNOGLOBULIN G
     Indication: SECONDARY IMMUNODEFICIENCY
     Dosage: 20 G, TOT; INFUSION RATE: 18-288 ML/H
     Route: 042
     Dates: start: 20160705, end: 20160705
  23. PRIVIGEN [Suspect]
     Active Substance: HUMAN IMMUNOGLOBULIN G
     Indication: SECONDARY IMMUNODEFICIENCY
     Dosage: 5 G, TOT
     Route: 042
     Dates: start: 20160802, end: 20160802
  24. PRIVIGEN [Suspect]
     Active Substance: HUMAN IMMUNOGLOBULIN G
     Dosage: UNK
     Route: 042
     Dates: start: 20160830, end: 20160830
  25. MITOMYCIN. [Concomitant]
     Active Substance: MITOMYCIN
     Indication: ANAL CANCER STAGE II
     Dosage: UNK
     Route: 065
     Dates: start: 20160711
  26. 5-FU                               /00098801/ [Concomitant]
     Active Substance: FLUOROURACIL
     Indication: ANAL CANCER STAGE II
     Dosage: UNK
     Route: 065
  27. FOLSAN [Concomitant]
     Active Substance: FOLIC ACID
     Dosage: 5 MG, OD (1-0-0-0)
     Route: 065

REACTIONS (7)
  - Pancytopenia [Recovered/Resolved]
  - Oral candidiasis [Recovered/Resolved]
  - Chills [Recovered/Resolved]
  - Chills [Recovered/Resolved]
  - Diarrhoea [Recovered/Resolved]
  - Mucosal inflammation [Recovered/Resolved]
  - Hypoaesthesia [Recovered/Resolved]

NARRATIVE: CASE EVENT DATE: 20160705
